FAERS Safety Report 7007146-2 (Version None)
Quarter: 2010Q3

REPORT INFORMATION
  Report Type: 
  Country: None (occurrence: None)
  Receive Date: 20100913
  Receipt Date: 20100906
  Transmission Date: 20110219
  Serious: Yes (Other)
  Sender: FDA-Public Use
  Company Number: 2010SP047612

PATIENT
  Age: 78 Year
  Sex: Male

DRUGS (7)
  1. ORGARAN [Suspect]
     Indication: THROMBOSIS PROPHYLAXIS
     Dosage: 3750 IU;BIW;IV
     Route: 042
     Dates: start: 20070801, end: 20100601
  2. BISOPROLOL [Concomitant]
  3. KARDEGIC [Concomitant]
  4. LASIX [Concomitant]
  5. TAHOR [Concomitant]
  6. RENAGEL [Concomitant]
  7. GABAPENTINE [Concomitant]

REACTIONS (2)
  - PEMPHIGOID [None]
  - URTICARIA [None]
